FAERS Safety Report 4621639-4 (Version None)
Quarter: 2005Q1

REPORT INFORMATION
  Report Type: 
  Country: None (occurrence: None)
  Receive Date: 20050328
  Receipt Date: 20050318
  Transmission Date: 20050727
  Serious: Yes (Hospitalization, Other)
  Sender: FDA-Public Use
  Company Number: 2005-02-0985

PATIENT
  Age: 30 Year
  Sex: Female
  Weight: 63.5036 kg

DRUGS (3)
  1. TEMODAR [Suspect]
     Indication: BRAIN NEOPLASM
     Dosage: SEE IMAGE
     Route: 048
     Dates: start: 20050104, end: 20050108
  2. TEMODAR [Suspect]
     Indication: BRAIN NEOPLASM
     Dosage: SEE IMAGE
     Route: 048
     Dates: start: 20050101
  3. RADIATION THERAPY [Concomitant]

REACTIONS (6)
  - ABDOMINAL PAIN [None]
  - CARDIAC FAILURE CONGESTIVE [None]
  - EOSINOPHILIA [None]
  - PLATELET COUNT DECREASED [None]
  - PYREXIA [None]
  - WHITE BLOOD CELL COUNT INCREASED [None]
